FAERS Safety Report 5112975-6 (Version None)
Quarter: 2006Q3

REPORT INFORMATION
  Report Type: 
  Country: None (occurrence: None)
  Receive Date: 20060920
  Receipt Date: 20060911
  Transmission Date: 20061208
  Serious: Yes (Hospitalization)
  Sender: FDA-Public Use
  Company Number: 163-20785-06090381

PATIENT
  Sex: Female

DRUGS (1)
  1. THALOMID [Suspect]
     Indication: ARTERIOVENOUS MALFORMATION
     Dosage: 100-600 MG, DAILY, ORAL
     Route: 048
     Dates: start: 20041212

REACTIONS (1)
  - SURGERY [None]
